FAERS Safety Report 8067408-7 (Version None)
Quarter: 2012Q1

REPORT INFORMATION
  Report Type: 
  Country: None (occurrence: None)
  Receive Date: 20120117
  Receipt Date: 20120102
  Transmission Date: 20120608
  Serious: Yes (Death, Hospitalization)
  Sender: FDA-Public Use
  Company Number: AUR-APL-2012-00429

PATIENT
  Age: 38 Year
  Sex: Female

DRUGS (8)
  1. CITALOPRAM HYDROBROMIDE [Suspect]
     Indication: PRODUCT USED FOR UNKNOWN INDICATION
     Dosage: UNKNOWN
     Dates: end: 20100101
  2. QUININE SULFATE [Suspect]
     Indication: PRODUCT USED FOR UNKNOWN INDICATION
     Dosage: UNKNOWN
     Dates: end: 20100101
  3. CARPROFEN (CARPROFEN) [Suspect]
     Indication: PRODUCT USED FOR UNKNOWN INDICATION
     Dosage: UNKNOWN
     Dates: end: 20100101
  4. PROMETHAZINE [Suspect]
     Indication: PRODUCT USED FOR UNKNOWN INDICATION
     Dosage: UNKNOWN
     Dates: end: 20100101
  5. BENZODIAZEPINES (BENZODIAZEPINE DERIVATIVES) [Suspect]
     Indication: PRODUCT USED FOR UNKNOWN INDICATION
     Dosage: UNKNOWN
     Dates: end: 20100101
  6. QUETIAPINE FUMARATE [Suspect]
     Indication: PRODUCT USED FOR UNKNOWN INDICATION
     Dosage: UNKNOWN
     Dates: end: 20100101
  7. ACETAMINOPHEN/DIPHENHYDRAMINE (DOZOL/00435101/) [Suspect]
     Indication: PRODUCT USED FOR UNKNOWN INDICATION
     Dosage: UNKNOWN
     Dates: end: 20100101
  8. OPIATES (OPIOIDS) [Suspect]
     Indication: PRODUCT USED FOR UNKNOWN INDICATION
     Dosage: UNKNOWN
     Dates: end: 20100101

REACTIONS (7)
  - AORTIC VALVE STENOSIS [None]
  - TOXICITY TO VARIOUS AGENTS [None]
  - CARDIAC HYPERTROPHY [None]
  - PULMONARY CONGESTION [None]
  - VISCERAL CONGESTION [None]
  - UNRESPONSIVE TO STIMULI [None]
  - COMPLETED SUICIDE [None]
